FAERS Safety Report 24992637 (Version 1)
Quarter: 2025Q1

REPORT INFORMATION
  Report Type: Spontaneous
  Country: JP (occurrence: JP)
  Receive Date: 20250221
  Receipt Date: 20250221
  Transmission Date: 20250409
  Serious: Yes (Other)
  Sender: BRISTOL-MYERS SQUIBB COMPANY
  Company Number: JP-BRISTOL-MYERS SQUIBB COMPANY-2025-024054

PATIENT
  Age: 7 Decade
  Sex: Male

DRUGS (2)
  1. YERVOY [Suspect]
     Active Substance: IPILIMUMAB
     Indication: Peritoneal mesothelioma malignant
  2. OPDIVO [Suspect]
     Active Substance: NIVOLUMAB
     Indication: Peritoneal mesothelioma malignant

REACTIONS (1)
  - Uveitis [Unknown]
